FAERS Safety Report 18573081 (Version 1)
Quarter: 2020Q4

REPORT INFORMATION
  Report Type: Other
  Country: CN (occurrence: CN)
  Receive Date: 20201203
  Receipt Date: 20201203
  Transmission Date: 20210114
  Serious: Yes (Hospitalization, Other)
  Sender: FDA-Public Use
  Company Number: CN-ROCHE-2601453

PATIENT
  Age: 73 Year
  Sex: Male
  Weight: 52 kg

DRUGS (18)
  1. OXALIPLATIN. [Suspect]
     Active Substance: OXALIPLATIN
     Route: 065
  2. HEMOCOAGULASE BOTHROPS ATROX [Concomitant]
     Indication: HAEMORRHAGE PROPHYLAXIS
     Route: 030
  3. RECOMBINANT HUMAN INTERLEUKIN-11 [Concomitant]
     Active Substance: OPRELVEKIN
     Indication: PLATELET COUNT DECREASED
  4. SODIUM CHLORIDE. [Concomitant]
     Active Substance: SODIUM CHLORIDE
  5. CAPECITABINE. [Suspect]
     Active Substance: CAPECITABINE
     Indication: RECTAL CANCER
     Dosage: 3 DAYS
     Route: 048
     Dates: start: 20190829
  6. OXALIPLATIN. [Suspect]
     Active Substance: OXALIPLATIN
     Indication: RECTAL CANCER
     Dosage: DAY1,2 CYCLES OF CHEMOTHERAPY
     Route: 065
     Dates: start: 20190720, end: 20190827
  7. NORVANCOMYCIN HYDROCHLORIDE [Concomitant]
     Active Substance: NORVANCOMYCIN HYDROCHLORIDE
     Route: 041
  8. HUMAN ALBUMIN [Concomitant]
     Active Substance: ALBUMIN HUMAN
     Route: 041
  9. CAPECITABINE. [Suspect]
     Active Substance: CAPECITABINE
     Indication: GASTRIC CANCER
     Dosage: DAY1 TO DAY14,2 CYCLES OF CHEMOTHERAPY
     Route: 048
     Dates: start: 20190720, end: 20190827
  10. NIFEDIPINE. [Concomitant]
     Active Substance: NIFEDIPINE
     Indication: HYPERTENSION
     Route: 048
  11. NORVANCOMYCIN HYDROCHLORIDE [Concomitant]
     Active Substance: NORVANCOMYCIN HYDROCHLORIDE
     Route: 041
  12. MEROPENEM. [Concomitant]
     Active Substance: MEROPENEM
     Route: 041
  13. VORICONAZOLE. [Concomitant]
     Active Substance: VORICONAZOLE
     Route: 041
  14. GIMERACIL;OTERACIL POTASSIUM;TEGAFUR [Suspect]
     Active Substance: GIMERACIL\OTERACIL\TEGAFUR
     Indication: GASTRIC CANCER
     Dosage: DAY1 TO DAY14,4 CYCLES OF CHEMOTHERAPY
     Route: 048
     Dates: start: 20190326, end: 20190622
  15. OXALIPLATIN. [Suspect]
     Active Substance: OXALIPLATIN
     Indication: GASTRIC CANCER
     Dosage: DAY1,4 CYCLES OF CHEMOTHERAPY
     Route: 065
     Dates: start: 20190326, end: 20190622
  16. OMEPRAZOLE. [Concomitant]
     Active Substance: OMEPRAZOLE
     Route: 041
  17. GIMERACIL;OTERACIL POTASSIUM;TEGAFUR [Suspect]
     Active Substance: GIMERACIL\OTERACIL\TEGAFUR
     Indication: RECTAL CANCER
     Dosage: 3 DAYS
     Route: 048
     Dates: start: 20190829
  18. SODIUM BICARBONATE. [Concomitant]
     Active Substance: SODIUM BICARBONATE

REACTIONS (9)
  - Overdose [Unknown]
  - Thrombocytopenia [Unknown]
  - Palmar-plantar erythrodysaesthesia syndrome [Unknown]
  - Myelosuppression [Unknown]
  - Neutropenia [Unknown]
  - Stomatitis [Recovering/Resolving]
  - Pyrexia [Unknown]
  - Cardiotoxicity [Recovering/Resolving]
  - Diarrhoea [Unknown]
